FAERS Safety Report 16960066 (Version 2)
Quarter: 2020Q1

REPORT INFORMATION
  Report Type: Spontaneous
  Country: US (occurrence: US)
  Receive Date: 20191025
  Receipt Date: 20200310
  Transmission Date: 20200409
  Serious: Yes (Hospitalization, Other)
  Sender: FDA-Public Use
  Company Number: US-SUNOVION-2019SUN004500

PATIENT
  Age: 58 Year
  Sex: Female

DRUGS (2)
  1. LONHALA MAGNAIR [Suspect]
     Active Substance: GLYCOPYRROLATE
     Indication: BRONCHITIS CHRONIC
     Dosage: UNK
     Route: 055
     Dates: start: 201806
  2. LONHALA MAGNAIR [Suspect]
     Active Substance: GLYCOPYRROLATE
     Indication: CHRONIC OBSTRUCTIVE PULMONARY DISEASE
     Dosage: 25 ?G, BID
     Route: 055

REACTIONS (4)
  - Bronchitis [Unknown]
  - Therapy cessation [Unknown]
  - Pneumonia [Unknown]
  - Malaise [Unknown]

NARRATIVE: CASE EVENT DATE: 201806
